FAERS Safety Report 10338884 (Version 1)
Quarter: 2014Q3

REPORT INFORMATION
  Report Type: Spontaneous
  Country: IT (occurrence: None)
  Receive Date: 20140721
  Receipt Date: 20140721
  Transmission Date: 20150326
  Serious: Yes (Other)
  Sender: FDA-Public Use
  Company Number: 2014JUB00050

PATIENT
  Age: 34 Year
  Sex: Female

DRUGS (1)
  1. ESCITALOPRAM [Suspect]
     Active Substance: ESCITALOPRAM OXALATE
     Indication: MAJOR DEPRESSION

REACTIONS (10)
  - Logorrhoea [None]
  - Delusion [None]
  - Euphoric mood [None]
  - Abnormal behaviour [None]
  - Withdrawal syndrome [None]
  - Insomnia [None]
  - Psychomotor hyperactivity [None]
  - Refusal of treatment by patient [None]
  - Mania [None]
  - Restlessness [None]
